FAERS Safety Report 13492127 (Version 1)
Quarter: 2017Q2

REPORT INFORMATION
  Report Type: Spontaneous
  Country: FR (occurrence: FR)
  Receive Date: 20170427
  Receipt Date: 20170427
  Transmission Date: 20170830
  Serious: Yes (Life-Threatening, Other)
  Sender: FDA-Public Use
  Company Number: FR-SUN PHARMACEUTICAL INDUSTRIES LTD-2017R1-139131

PATIENT
  Age: 8 Month
  Sex: Male
  Weight: 3.7 kg

DRUGS (5)
  1. PYRIDOXAL PHOSPHATE [Suspect]
     Active Substance: PYRIDOXAL PHOSPHATE
     Indication: STATUS EPILEPTICUS
     Route: 048
  2. VIGABATRIN. [Suspect]
     Active Substance: VIGABATRIN
     Indication: STATUS EPILEPTICUS
     Route: 048
  3. CLONAZEPAM. [Suspect]
     Active Substance: CLONAZEPAM
     Indication: STATUS EPILEPTICUS
     Route: 048
  4. VALPROIC ACID. [Suspect]
     Active Substance: VALPROIC ACID
     Indication: STATUS EPILEPTICUS
     Route: 048
  5. PYRIDOXINE [Suspect]
     Active Substance: PYRIDOXINE
     Indication: STATUS EPILEPTICUS
     Route: 048

REACTIONS (1)
  - Drug ineffective [Not Recovered/Not Resolved]
